FAERS Safety Report 8445288-5 (Version None)
Quarter: 2012Q2

REPORT INFORMATION
  Report Type: 
  Country: None (occurrence: None)
  Receive Date: 20120618
  Receipt Date: 20120614
  Transmission Date: 20120825
  Serious: Yes (Death, Life-Threatening, Hospitalization)
  Sender: FDA-Public Use
  Company Number: AR-B.I. PHARMACEUTICALS,INC./RIDGEFIELD-2012-RA-00159RA

PATIENT
  Age: 90 Year
  Sex: Male
  Weight: 70 kg

DRUGS (3)
  1. PRADAXA [Suspect]
     Indication: CEREBROVASCULAR ACCIDENT PROPHYLAXIS
     Dosage: 220 MG
     Route: 048
     Dates: start: 20111201, end: 20120611
  2. CARVEDILOL [Concomitant]
     Indication: HYPERTENSION
     Route: 048
     Dates: end: 20120609
  3. METFORMIN HCL [Concomitant]
     Indication: DIABETES MELLITUS
     Route: 048

REACTIONS (4)
  - PULMONARY EMBOLISM [None]
  - DYSPNOEA [None]
  - SHOCK [None]
  - CARDIO-RESPIRATORY ARREST [None]
